FAERS Safety Report 9376035 (Version 1)
Quarter: 2013Q2

REPORT INFORMATION
  Report Type: Spontaneous
  Country: US (occurrence: US)
  Receive Date: 20130629
  Receipt Date: 20130629
  Transmission Date: 20140414
  Serious: Yes (Hospitalization)
  Sender: FDA-Public Use
  Company Number: US-MYLANLABS-2013S1013689

PATIENT
  Age: 15 Year
  Sex: Female

DRUGS (2)
  1. METFORMIN 500 MG TABLETS [Suspect]
     Indication: INTENTIONAL OVERDOSE
     Dosage: 150 TABLETS OF 500MG
     Route: 048
  2. QUETIAPINE TABLETS 100 MG [Suspect]
     Indication: INTENTIONAL OVERDOSE
     Dosage: 30 TABLETS OF 100MG
     Route: 048

REACTIONS (3)
  - Hypoglycaemia [Recovered/Resolved]
  - Lactic acidosis [Recovered/Resolved]
  - Intentional overdose [Recovered/Resolved]
